FAERS Safety Report 5367029-0 (Version None)
Quarter: 2007Q2

REPORT INFORMATION
  Report Type: 
  Country: None (occurrence: None)
  Receive Date: 20070622
  Receipt Date: 20070618
  Transmission Date: 20071010
  Serious: Yes (Life-Threatening, Other)
  Sender: FDA-Public Use
  Company Number: A0656652A

PATIENT
  Age: 59 Year
  Sex: Male
  Weight: 95.5 kg

DRUGS (4)
  1. AVANDIA [Suspect]
     Dosage: 4MG UNKNOWN
     Route: 065
     Dates: start: 20070406
  2. DIABETA [Concomitant]
     Dosage: 2.5MG TWICE PER DAY
  3. MONOPRIL [Concomitant]
  4. CADUET [Concomitant]

REACTIONS (3)
  - DIPLOPIA [None]
  - HYPERTENSIVE CRISIS [None]
  - VISION BLURRED [None]
